FAERS Safety Report 25703271 (Version 4)
Quarter: 2025Q3

REPORT INFORMATION
  Report Type: Spontaneous
  Country: GB (occurrence: GB)
  Receive Date: 20250820
  Receipt Date: 20250908
  Transmission Date: 20251021
  Serious: Yes (Other)
  Sender: BAXTER
  Company Number: GB-BAXTER-2025BAX019514

PATIENT
  Age: 67 Year
  Sex: Male
  Weight: 75 kg

DRUGS (6)
  1. IFOSFAMIDE [Suspect]
     Active Substance: IFOSFAMIDE
     Indication: Anaplastic large cell lymphoma T- and null-cell types
     Route: 065
  2. IFOSFAMIDE [Suspect]
     Active Substance: IFOSFAMIDE
     Indication: T-cell lymphoma refractory
  3. CARBOPLATIN [Suspect]
     Active Substance: CARBOPLATIN
     Indication: Anaplastic large cell lymphoma T- and null-cell types
     Route: 065
  4. CARBOPLATIN [Suspect]
     Active Substance: CARBOPLATIN
     Indication: T-cell lymphoma refractory
  5. ETOPOSIDE [Suspect]
     Active Substance: ETOPOSIDE
     Indication: T-cell lymphoma refractory
     Route: 065
  6. ETOPOSIDE [Suspect]
     Active Substance: ETOPOSIDE
     Indication: Anaplastic large cell lymphoma T- and null-cell types

REACTIONS (3)
  - T-cell lymphoma refractory [Unknown]
  - Anaplastic large cell lymphoma T- and null-cell types [Unknown]
  - Malignant neoplasm progression [Unknown]
